FAERS Safety Report 24414043 (Version 7)
Quarter: 2025Q2

REPORT INFORMATION
  Report Type: Report from Study
  Country: US (occurrence: US)
  Receive Date: 20241008
  Receipt Date: 20250630
  Transmission Date: 20250716
  Serious: No
  Sender: SUNOVION
  Company Number: US-SMPA-2024SPA003430AA

PATIENT

DRUGS (4)
  1. ORGOVYX [Suspect]
     Active Substance: RELUGOLIX
     Indication: Prostate cancer
     Dosage: 360 MG, SINGLE
     Route: 048
     Dates: start: 20240904, end: 20240904
  2. ORGOVYX [Suspect]
     Active Substance: RELUGOLIX
     Dosage: 120 MG, QD
     Route: 048
     Dates: start: 20250321
  3. ERLEADA [Suspect]
     Active Substance: APALUTAMIDE
     Route: 065
  4. XTANDI [Concomitant]
     Active Substance: ENZALUTAMIDE
     Route: 065

REACTIONS (7)
  - Therapeutic procedure [Unknown]
  - Muscle spasms [Unknown]
  - Joint stiffness [Unknown]
  - Dizziness [Unknown]
  - Back pain [Unknown]
  - Myalgia [Recovering/Resolving]
  - Arthralgia [Unknown]
